FAERS Safety Report 6611307-1 (Version None)
Quarter: 2010Q1

REPORT INFORMATION
  Report Type: 
  Country: None (occurrence: None)
  Receive Date: 20100301
  Receipt Date: 20100301
  Transmission Date: 20100710
  Serious: No
  Sender: FDA-Public Use
  Company Number: None

PATIENT
  Age: 74 Year
  Sex: Female
  Weight: 68.0396 kg

DRUGS (1)
  1. ALENDRONATE SODIUM [Suspect]
     Indication: OSTEOPENIA
     Dosage: 35 MG ONCE WEEKLY PO
     Route: 048
     Dates: start: 20080101, end: 20090101

REACTIONS (3)
  - ABDOMINAL PAIN UPPER [None]
  - MELAENA [None]
  - OESOPHAGEAL PAIN [None]
